FAERS Safety Report 5092047-X (Version None)
Quarter: 2006Q3

REPORT INFORMATION
  Report Type: 
  Country: None (occurrence: None)
  Receive Date: 20060825
  Receipt Date: 20060809
  Transmission Date: 20061208
  Serious: Yes (Death)
  Sender: FDA-Public Use
  Company Number: AU200607004673

PATIENT
  Age: 36 Year
  Sex: Female

DRUGS (6)
  1. XIGRIS [Suspect]
  2. VASOPRESSIN AND ANALOGUES [Concomitant]
  3. HYDROCORTISONE [Concomitant]
  4. VANCOMYCIN [Concomitant]
  5. MEROPENEM [Concomitant]
  6. NORADRENALINE (NOREPINEPHRINE) [Concomitant]

REACTIONS (1)
  - SEPTIC SHOCK [None]
